FAERS Safety Report 11780930 (Version 1)
Quarter: 2015Q4

REPORT INFORMATION
  Report Type: Other
  Country: UG (occurrence: UG)
  Receive Date: 20151126
  Receipt Date: 20151126
  Transmission Date: 20160305
  Serious: Yes (Other)
  Sender: FDA-Public Use
  Company Number: UG-HETERO LABS LTD-1044685

PATIENT
  Age: 15 Year
  Sex: Female
  Weight: 42 kg

DRUGS (3)
  1. NEVIRAPINE. [Suspect]
     Active Substance: NEVIRAPINE
     Route: 065
  2. ZIDOVUDINE. [Suspect]
     Active Substance: ZIDOVUDINE
     Route: 065
  3. LAMIVUDINE. [Suspect]
     Active Substance: LAMIVUDINE
     Indication: HIV INFECTION
     Route: 065

REACTIONS (3)
  - Treatment noncompliance [Unknown]
  - Left ventricular dysfunction [Recovering/Resolving]
  - Cardiac failure [Recovering/Resolving]
